FAERS Safety Report 5632517-6 (Version None)
Quarter: 2008Q1

REPORT INFORMATION
  Report Type: 
  Country: None (occurrence: None)
  Receive Date: 20080219
  Receipt Date: 20080204
  Transmission Date: 20080703
  Serious: Yes (Life-Threatening, Hospitalization, Disabling, Other)
  Sender: FDA-Public Use
  Company Number: ADE2008-0119

PATIENT
  Age: 63 Year
  Sex: Female

DRUGS (13)
  1. AMOXICILLIN [Suspect]
     Dosage: 500MG TID - PO
     Route: 048
     Dates: start: 20071217, end: 20071222
  2. WARFARIN SODIUM [Suspect]
     Dates: end: 20071223
  3. ALENDRONATE SODIUM [Concomitant]
  4. ASPIRIN [Concomitant]
  5. ATENOLOL [Concomitant]
  6. ATENOLOL [Concomitant]
  7. BUMETANIDE [Concomitant]
  8. CALCICHEW D3 [Concomitant]
  9. INFLIXIMAB [Concomitant]
  10. PENTASA [Concomitant]
  11. PREDNISOLONE [Concomitant]
  12. RAMIPRIL [Concomitant]
  13. TRIMIPRAMINE MALEATE [Concomitant]

REACTIONS (7)
  - ABDOMINAL DISTENSION [None]
  - ABDOMINAL PAIN LOWER [None]
  - COLITIS ULCERATIVE [None]
  - CONTUSION [None]
  - INTERNATIONAL NORMALISED RATIO ABNORMAL [None]
  - MUSCLE HAEMORRHAGE [None]
  - RECTAL HAEMORRHAGE [None]
